FAERS Safety Report 6186977-5 (Version None)
Quarter: 2009Q2

REPORT INFORMATION
  Report Type: 
  Country: None (occurrence: None)
  Receive Date: 20090508
  Receipt Date: 20090420
  Transmission Date: 20091009
  Serious: Yes (Other)
  Sender: FDA-Public Use
  Company Number: ADE# 09-092DPR

PATIENT
  Age: 67 Year
  Sex: Female

DRUGS (10)
  1. DIGOXIN [Suspect]
     Dosage: 1 1/2 TABLET ONCE DAILY
  2. ADVAIR HFA [Concomitant]
  3. SPIRIVA [Concomitant]
  4. EVISTA [Concomitant]
  5. VITAMIN D [Concomitant]
  6. OMEPRAZOLE [Concomitant]
  7. ZOLOFT [Concomitant]
  8. ALPRAZOLAM [Concomitant]
  9. FLUDROCORTISONE [Concomitant]
  10. ROPINIROLE [Concomitant]

REACTIONS (8)
  - CONTUSION [None]
  - EYE DISORDER [None]
  - EYELID PTOSIS [None]
  - FALL [None]
  - FRACTURED ZYGOMATIC ARCH ELEVATION [None]
  - HYPOTENSION [None]
  - SYNCOPE [None]
  - VISUAL IMPAIRMENT [None]
